FAERS Safety Report 23854294 (Version 2)
Quarter: 2024Q2

REPORT INFORMATION
  Report Type: Report from Study
  Country: ZA (occurrence: ZA)
  Receive Date: 20240514
  Receipt Date: 20240610
  Transmission Date: 20240716
  Serious: Yes (Other)
  Sender: FDA-Public Use
  Company Number: ZA-002147023-NVSC2024ZA091160

PATIENT
  Age: 51 Year
  Sex: Female

DRUGS (1)
  1. OFATUMUMAB [Suspect]
     Active Substance: OFATUMUMAB
     Indication: Multiple sclerosis
     Dosage: 20 MG, QMO (ONCE A MONTH)
     Route: 058

REACTIONS (4)
  - Multiple sclerosis relapse [Unknown]
  - Balance disorder [Unknown]
  - Tremor [Unknown]
  - Coordination abnormal [Unknown]
